FAERS Safety Report 6607506-5 (Version None)
Quarter: 2010Q1

REPORT INFORMATION
  Report Type: 
  Country: None (occurrence: None)
  Receive Date: 20100301
  Receipt Date: 20100215
  Transmission Date: 20100710
  Serious: Yes (Hospitalization, Other)
  Sender: FDA-Public Use
  Company Number: US-ELI_LILLY_AND_COMPANY-US201002004316

PATIENT
  Sex: Female

DRUGS (12)
  1. FORTEO [Suspect]
     Indication: OSTEOPOROSIS
     Dosage: 20 UG, DAILY (1/D)
  2. FORTEO [Suspect]
     Dosage: 20 UG, DAILY (1/D)
     Dates: start: 20090101
  3. METFORMIN HYDROCHLORIDE [Concomitant]
  4. EYE DROPS [Concomitant]
     Dosage: UNK, OTHER
  5. ASPIRIN [Concomitant]
     Dosage: UNK, DAILY (1/D)
  6. DILTIAZEM HCL [Concomitant]
  7. METOPROLOL TARTRATE [Concomitant]
  8. PRENATAL [Concomitant]
  9. PLAVIX [Concomitant]
     Dosage: UNK, DAILY (1/D)
  10. CALCIUM W/VITAMIN D NOS [Concomitant]
  11. POTASSIUM [Concomitant]
  12. NITROFURANTOIN [Concomitant]
     Indication: RENAL DISORDER

REACTIONS (9)
  - ARTHRALGIA [None]
  - CATHETERISATION CARDIAC [None]
  - CONCUSSION [None]
  - CORONARY ARTERIAL STENT INSERTION [None]
  - DYSPNOEA [None]
  - FALL [None]
  - HEADACHE [None]
  - MIGRAINE [None]
  - SURGERY [None]
